FAERS Safety Report 8586624 (Version 5)
Quarter: 2013Q2

REPORT INFORMATION
  Report Type: Spontaneous
  Country: US (occurrence: US)
  Receive Date: 20120530
  Receipt Date: 20130425
  Transmission Date: 20140414
  Serious: Yes (Hospitalization, Disabling, Other)
  Sender: FDA-Public Use
  Company Number: US-009507513-1205USA04576

PATIENT
  Sex: Female

DRUGS (9)
  1. FOSAMAX [Suspect]
     Indication: OSTEOPOROSIS
     Dosage: 70 MG, QW
     Route: 048
     Dates: start: 20060706, end: 200802
  2. FOSAMAX [Suspect]
     Indication: OSTEOPENIA
  3. ALENDRONATE SODIUM [Suspect]
     Indication: OSTEOPENIA
     Dosage: 70 MG, UNK
     Dates: start: 20080219, end: 20100315
  4. ALENDRONATE SODIUM [Suspect]
     Indication: OSTEOPOROSIS
  5. SYNTHROID [Concomitant]
     Indication: HYPOTHYROIDISM
     Dosage: 50 MICROGRAM, QD
     Route: 048
     Dates: start: 19900101
  6. ATENOLOL [Concomitant]
     Indication: HYPERTENSION
     Dosage: 50 MG, QD
     Route: 048
     Dates: start: 1997
  7. LORAZEPAM [Concomitant]
     Indication: ANXIETY
     Dosage: 0.5 MG, TID
     Route: 048
     Dates: start: 1997
  8. NORTRIPTYLINE [Concomitant]
     Indication: DEPRESSION
     Dosage: 50 MG, HS
     Route: 048
     Dates: start: 1995
  9. METFORMIN [Concomitant]
     Indication: TYPE 2 DIABETES MELLITUS
     Dosage: UNK
     Dates: start: 2003, end: 2007

REACTIONS (47)
  - Stress fracture [Not Recovered/Not Resolved]
  - Femur fracture [Not Recovered/Not Resolved]
  - Fracture nonunion [Not Recovered/Not Resolved]
  - Intramedullary rod insertion [Unknown]
  - Presyncope [Unknown]
  - Convulsion [Unknown]
  - Bradycardia [Unknown]
  - Road traffic accident [Unknown]
  - Liver function test abnormal [Unknown]
  - Osteoporosis [Not Recovered/Not Resolved]
  - Gallbladder disorder [Unknown]
  - Chronic obstructive pulmonary disease [Unknown]
  - Cerebral atrophy [Unknown]
  - Bone disorder [Unknown]
  - Chest pain [Unknown]
  - Hyperkalaemia [Unknown]
  - Low turnover osteopathy [Not Recovered/Not Resolved]
  - Impaired healing [Unknown]
  - Fall [Unknown]
  - Ulcer [Unknown]
  - Pneumonia [Unknown]
  - Skin ulcer [Unknown]
  - Carotid artery disease [Unknown]
  - Anaemia [Unknown]
  - Cellulitis [Unknown]
  - Asthenia [Unknown]
  - Insomnia [Unknown]
  - Peripheral arterial occlusive disease [Unknown]
  - Skin disorder [Unknown]
  - Congenital cystic kidney disease [Unknown]
  - Hypotension [Unknown]
  - Hyperlipidaemia [Unknown]
  - Spinal osteoarthritis [Unknown]
  - Dementia [Unknown]
  - Cataract operation [Unknown]
  - Anaemia postoperative [Unknown]
  - Induration [Unknown]
  - Urinary tract infection [Unknown]
  - Infection [Not Recovered/Not Resolved]
  - Hypersensitivity [Unknown]
  - Vertigo [Unknown]
  - Dyspepsia [Unknown]
  - Drug hypersensitivity [Unknown]
  - Dysphagia [Unknown]
  - Local swelling [Unknown]
  - Gastrooesophageal reflux disease [Unknown]
  - Pain in extremity [Unknown]
